FAERS Safety Report 6642464-9 (Version None)
Quarter: 2010Q1

REPORT INFORMATION
  Report Type: 
  Country: None (occurrence: None)
  Receive Date: 20100319
  Receipt Date: 20100316
  Transmission Date: 20100710
  Serious: Yes (Hospitalization)
  Sender: FDA-Public Use
  Company Number: CH-SANOFI-AVENTIS-2010SA015389

PATIENT
  Age: 65 Year
  Sex: Male

DRUGS (8)
  1. ARAVA [Suspect]
     Route: 048
     Dates: start: 20091101, end: 20100127
  2. CALCORT [Concomitant]
     Route: 048
  3. SEROPRAM [Concomitant]
     Route: 048
  4. CONDROSULF [Concomitant]
     Route: 048
  5. RANITIDINE [Concomitant]
     Route: 048
  6. IBUPROFEN [Concomitant]
     Route: 048
  7. CO-DAFALGAN [Concomitant]
  8. DIPYRONE TAB [Concomitant]
     Route: 048

REACTIONS (4)
  - DIARRHOEA [None]
  - HEADACHE [None]
  - HEPATIC ENZYME INCREASED [None]
  - RASH MACULO-PAPULAR [None]
